FAERS Safety Report 7691047-0 (Version None)
Quarter: 2011Q3

REPORT INFORMATION
  Report Type: 
  Country: None (occurrence: None)
  Receive Date: 20110818
  Receipt Date: 20110808
  Transmission Date: 20111222
  Serious: Yes (Life-Threatening)
  Sender: FDA-Public Use
  Company Number: HU-GENENTECH-322874

PATIENT
  Sex: Male

DRUGS (1)
  1. MABTHERA [Suspect]
     Indication: DIFFUSE LARGE B-CELL LYMPHOMA
     Dosage: 700 MG, 4/WEEK
     Route: 042

REACTIONS (3)
  - ACUTE RESPIRATORY DISTRESS SYNDROME [None]
  - SEPSIS [None]
  - PNEUMONIA [None]
